FAERS Safety Report 8025115-0 (Version None)
Quarter: 2012Q1

REPORT INFORMATION
  Report Type: 
  Country: None (occurrence: None)
  Receive Date: 20120105
  Receipt Date: 20120105
  Transmission Date: 20120608
  Serious: Yes (Hospitalization)
  Sender: FDA-Public Use
  Company Number: DE-ROCHE-1022191

PATIENT
  Age: 50 Year
  Sex: Female
  Weight: 91 kg

DRUGS (10)
  1. IBUPROFEN [Suspect]
     Indication: PRODUCT USED FOR UNKNOWN INDICATION
  2. CALCIUM CARBONATE AND GLYCINE [Suspect]
     Indication: PRODUCT USED FOR UNKNOWN INDICATION
  3. PREDNISOLONE [Suspect]
     Indication: PRODUCT USED FOR UNKNOWN INDICATION
  4. ACTEMRA [Suspect]
     Route: 042
     Dates: start: 20111006
  5. ACTEMRA [Suspect]
     Indication: RHEUMATOID ARTHRITIS
     Route: 042
     Dates: start: 20110630
  6. ACTEMRA [Suspect]
     Route: 042
     Dates: start: 20110722
  7. ACTEMRA [Suspect]
     Route: 042
     Dates: start: 20110830
  8. ACTEMRA [Suspect]
     Route: 042
     Dates: start: 20111114
  9. LEVOTHYROXINE SODIUM [Suspect]
     Indication: PRODUCT USED FOR UNKNOWN INDICATION
  10. ACTEMRA [Suspect]
     Route: 042
     Dates: start: 20111212

REACTIONS (2)
  - ALOPECIA [None]
  - ANAPHYLACTIC SHOCK [None]
